FAERS Safety Report 10170984 (Version 1)
Quarter: 2014Q2

REPORT INFORMATION
  Report Type: Spontaneous
  Country: US (occurrence: None)
  Receive Date: 20140513
  Receipt Date: 20140513
  Transmission Date: 20141212
  Serious: No
  Sender: FDA-Public Use
  Company Number: None

PATIENT
  Age: 67 Year
  Sex: Male

DRUGS (1)
  1. ENBREL [Suspect]
     Indication: PSORIASIS
     Dosage: 50MG BIW SQ
     Route: 058
     Dates: start: 20120406

REACTIONS (5)
  - Injection site pain [None]
  - Injection site extravasation [None]
  - Injection site swelling [None]
  - Syringe issue [None]
  - Needle issue [None]
